FAERS Safety Report 4976816-X (Version None)
Quarter: 2006Q2

REPORT INFORMATION
  Report Type: 
  Country: None (occurrence: None)
  Receive Date: 20060413
  Receipt Date: 20060403
  Transmission Date: 20061013
  Serious: Yes (Other)
  Sender: FDA-Public Use
  Company Number: 2005082834

PATIENT
  Age: 35 Year
  Sex: Female
  Weight: 68.0396 kg

DRUGS (2)
  1. ZANTAC 150 [Suspect]
     Indication: GASTROOESOPHAGEAL REFLUX DISEASE
     Dosage: ONE DAILY, ORAL
     Route: 048
     Dates: start: 20050101
  2. ROLAIDS SOFT CHEWS VANILLA CREME (CALCIUM CARBONATE) [Suspect]
     Indication: DYSPEPSIA
     Dosage: 1 OR 2 CHEWS DAILY, ORAL
     Route: 048
     Dates: start: 20050525, end: 20050531

REACTIONS (3)
  - ABORTION SPONTANEOUS [None]
  - DRUG EXPOSURE DURING PREGNANCY [None]
  - PREGNANCY [None]
